APPROVED DRUG PRODUCT: THIORIDAZINE HYDROCHLORIDE
Active Ingredient: THIORIDAZINE HYDROCHLORIDE
Strength: 100MG
Dosage Form/Route: TABLET;ORAL
Application: A088335 | Product #001
Applicant: MYLAN PHARMACEUTICALS INC
Approved: Nov 18, 1983 | RLD: No | RS: No | Type: DISCN